FAERS Safety Report 9730190 (Version 1)
Quarter: 2013Q4

REPORT INFORMATION
  Report Type: Spontaneous
  Country: US (occurrence: US)
  Receive Date: 20131204
  Receipt Date: 20131204
  Transmission Date: 20140711
  Serious: No
  Sender: FDA-Public Use
  Company Number: US-ENDO PHARMACEUTICALS INC.-APIR20120020

PATIENT
  Age: 54 Year
  Sex: Female

DRUGS (2)
  1. ALPRAZOLAM IR TABLETS [Suspect]
     Indication: PRODUCT USED FOR UNKNOWN INDICATION
     Dosage: 0.5 MG
     Route: 048
     Dates: start: 20121108
  2. ZOLPIDEM TARTRATE TABLETS 10MG [Suspect]
     Indication: INSOMNIA
     Route: 048
     Dates: start: 20121108

REACTIONS (1)
  - Drug ineffective [Not Recovered/Not Resolved]
